FAERS Safety Report 9608959 (Version 2)
Quarter: 2013Q4

REPORT INFORMATION
  Report Type: Spontaneous
  Country: US (occurrence: US)
  Receive Date: 20131009
  Receipt Date: 20131025
  Transmission Date: 20140711
  Serious: No
  Sender: FDA-Public Use
  Company Number: US-PFIZER INC-2013285581

PATIENT
  Age: 84 Year
  Sex: Female
  Weight: 64.85 kg

DRUGS (10)
  1. TOVIAZ [Suspect]
     Indication: HYPERTONIC BLADDER
     Dosage: 4 MG, 1X/DAY
     Route: 048
     Dates: start: 20130916, end: 201310
  2. ALENDRONATE [Concomitant]
     Dosage: UNK
  3. AMLODIPINE [Concomitant]
     Dosage: UNK
  4. ATENOLOL [Concomitant]
     Dosage: UNK
  5. DONEPEZIL [Concomitant]
     Dosage: UNK
  6. LEVOTHYROXINE [Concomitant]
     Dosage: UNK
  7. LISINOPRIL [Concomitant]
     Dosage: UNK
  8. HCTZ [Concomitant]
     Dosage: UNK
  9. LORAZEPAM [Concomitant]
     Dosage: UNK
  10. NAMENDA [Concomitant]
     Dosage: UNK

REACTIONS (3)
  - Body height decreased [Recovered/Resolved]
  - Drug ineffective [Unknown]
  - Somnolence [Recovered/Resolved]
